FAERS Safety Report 8816387 (Version 2)
Quarter: 2012Q4

REPORT INFORMATION
  Report Type: Spontaneous
  Country: US (occurrence: None)
  Receive Date: 20120927
  Receipt Date: 20121116
  Transmission Date: 20130627
  Serious: Yes (Death, Hospitalization)
  Sender: FDA-Public Use
  Company Number: 139236

PATIENT
  Age: 58 Year
  Sex: Female
  Weight: 55 kg

DRUGS (1)
  1. LEUCOVORIN [Suspect]
     Indication: METASTATIC COLORECTAL CANCER
     Dates: start: 20110510, end: 20110628

REACTIONS (8)
  - Vomiting [None]
  - Proctalgia [None]
  - Fatigue [None]
  - Asthenia [None]
  - Normochromic normocytic anaemia [None]
  - Nausea [None]
  - Colorectal cancer metastatic [None]
  - Malignant neoplasm progression [None]
